FAERS Safety Report 17067239 (Version 2)
Quarter: 2020Q1

REPORT INFORMATION
  Report Type: Spontaneous
  Country: FR (occurrence: FR)
  Receive Date: 20191122
  Receipt Date: 20200108
  Transmission Date: 20200409
  Serious: Yes (Other)
  Sender: FDA-Public Use
  Company Number: FR-ELI_LILLY_AND_COMPANY-FR201911007874

PATIENT
  Age: 67 Year
  Sex: Female
  Weight: 62 kg

DRUGS (2)
  1. ZYMA [Concomitant]
     Active Substance: PROBIOTICS NOS
     Indication: PRODUCT USED FOR UNKNOWN INDICATION
     Dosage: 1 DOSAGE FORM, MONTHLY (1/M)
     Route: 048
     Dates: start: 20181220
  2. FORSTEO 250UG/ML [Suspect]
     Active Substance: TERIPARATIDE
     Indication: OSTEOPOROSIS
     Dosage: 20 UG, DAILY
     Route: 058
     Dates: start: 201807, end: 201912

REACTIONS (7)
  - Sinus tachycardia [Not Recovered/Not Resolved]
  - Dizziness [Not Recovered/Not Resolved]
  - Supraventricular extrasystoles [Not Recovered/Not Resolved]
  - Atrial fibrillation [Not Recovered/Not Resolved]
  - Incorrect dose administered [Unknown]
  - Dizziness [Unknown]
  - Cardiac fibrillation [Unknown]

NARRATIVE: CASE EVENT DATE: 20190113
